FAERS Safety Report 6812911-8 (Version None)
Quarter: 2010Q3

REPORT INFORMATION
  Report Type: 
  Country: None (occurrence: None)
  Receive Date: 20100701
  Receipt Date: 20100629
  Transmission Date: 20110219
  Serious: Yes (Hospitalization)
  Sender: FDA-Public Use
  Company Number: US-BRISTOL-MYERS SQUIBB COMPANY-15171226

PATIENT
  Sex: Female

DRUGS (3)
  1. GLUCOPHAGE [Suspect]
     Indication: DIABETES MELLITUS
     Route: 065
  2. PRANDIN [Suspect]
     Indication: DIABETES MELLITUS
     Route: 065
  3. AVANDIA [Suspect]
     Indication: DIABETES MELLITUS
     Dosage: TABLET
     Route: 065

REACTIONS (1)
  - HEPATIC FAILURE [None]
